FAERS Safety Report 6974443-6 (Version None)
Quarter: 2010Q3

REPORT INFORMATION
  Report Type: 
  Country: None (occurrence: None)
  Receive Date: 20100909
  Receipt Date: 20100820
  Transmission Date: 20110219
  Serious: Yes (Other)
  Sender: FDA-Public Use
  Company Number: US-VALEANT-2010VX001427

PATIENT
  Age: 68 Year
  Sex: Female

DRUGS (4)
  1. TIMOPTIC [Suspect]
     Indication: GLAUCOMA
     Route: 047
     Dates: start: 20090317
  2. DORZOLAMIDE HYDROCHLORIDE [Suspect]
     Indication: GLAUCOMA
     Route: 047
     Dates: start: 20090527, end: 20090702
  3. DORZOLAMIDE HYDROCHLORIDE [Suspect]
     Route: 047
     Dates: start: 20090527, end: 20090702
  4. COSOPT [Concomitant]
     Route: 065
     Dates: start: 20090527, end: 20091001

REACTIONS (9)
  - ANEURYSM [None]
  - ASTHENOPIA [None]
  - DIZZINESS [None]
  - DRUG HYPERSENSITIVITY [None]
  - EYE DISORDER [None]
  - EYE HAEMORRHAGE [None]
  - MACULAR DEGENERATION [None]
  - METAMORPHOPSIA [None]
  - NAUSEA [None]
